FAERS Safety Report 4531640-7 (Version None)
Quarter: 2004Q4

REPORT INFORMATION
  Report Type: 
  Country: None (occurrence: None)
  Receive Date: 20041217
  Receipt Date: 20041217
  Transmission Date: 20050328
  Serious: Yes (Death)
  Sender: FDA-Public Use
  Company Number: None

PATIENT
  Sex: Male

DRUGS (7)
  1. IRESSA [Suspect]
     Indication: BLADDER CANCER
     Dosage: 500 MG QD ORAL
     Route: 048
     Dates: start: 20041027, end: 20041129
  2. OXYCODONE HCL [Concomitant]
  3. ATIVAN [Concomitant]
  4. COLACE [Concomitant]
  5. CELEBREX [Concomitant]
  6. OXYCONTIN [Concomitant]
  7. RID MOUSSE [Concomitant]

REACTIONS (1)
  - DISEASE PROGRESSION [None]
